FAERS Safety Report 8397622-2 (Version None)
Quarter: 2012Q2

REPORT INFORMATION
  Report Type: 
  Country: None (occurrence: None)
  Receive Date: 20120524
  Receipt Date: 20120521
  Transmission Date: 20120825
  Serious: Yes (Death)
  Sender: FDA-Public Use
  Company Number: 201205000018

PATIENT
  Age: 19 Year
  Sex: Female
  Weight: 77 kg

DRUGS (2)
  1. INOMAX [Suspect]
     Indication: HYPOXIA
     Dosage: 20 PPM, CONTINUOUS, INHALATION
     Route: 055
     Dates: start: 20120311, end: 20120312
  2. INOMAX [Suspect]
     Indication: HYPOXIA
     Dosage: 20 PPM, CONTINUOUS, INHALATION
     Route: 055
     Dates: start: 20120308, end: 20120311

REACTIONS (1)
  - DISEASE PROGRESSION [None]
